FAERS Safety Report 5582826-4 (Version None)
Quarter: 2008Q1

REPORT INFORMATION
  Report Type: 
  Country: None (occurrence: None)
  Receive Date: 20080107
  Receipt Date: 20071225
  Transmission Date: 20080703
  Serious: Yes (Death, Hospitalization)
  Sender: FDA-Public Use
  Company Number: JP-AMGEN-US258456

PATIENT
  Sex: Female

DRUGS (3)
  1. ENBREL [Suspect]
     Indication: RHEUMATOID ARTHRITIS
     Route: 058
     Dates: start: 20060828, end: 20071201
  2. PROGRAF [Suspect]
     Route: 048
     Dates: start: 20060801, end: 20071201
  3. METHOTREXATE [Suspect]
     Dosage: UNKNOWN
     Route: 048
     Dates: start: 20060801, end: 20071201

REACTIONS (1)
  - INTERSTITIAL LUNG DISEASE [None]
